FAERS Safety Report 5558717-1 (Version None)
Quarter: 2007Q4

REPORT INFORMATION
  Report Type: 
  Country: None (occurrence: None)
  Receive Date: 20071214
  Receipt Date: 20070904
  Transmission Date: 20080405
  Serious: No
  Sender: FDA-Public Use
  Company Number: US-ABBOTT-07P-163-0416269-00

PATIENT
  Sex: Female
  Weight: 59.02 kg

DRUGS (10)
  1. HUMIRA [Suspect]
     Indication: RHEUMATOID ARTHRITIS
     Route: 058
     Dates: start: 20070501
  2. LEFLUNOMIDE [Concomitant]
     Indication: RHEUMATOID ARTHRITIS
     Route: 048
  3. ACETAMINOPHEN W/ CODEINE [Concomitant]
     Indication: PAIN
     Dosage: 2 TABLETS AT BEDTIME DAILY AND 1 TO 2 TABLETS EVERY 6 HOURS AS REQUIRED
     Route: 048
  4. ACETAMINOPHEN W/ CODEINE [Concomitant]
     Route: 048
  5. ATENOLOL [Concomitant]
     Indication: BLOOD PRESSURE
     Route: 048
  6. DYAZIDE [Concomitant]
     Indication: DIURETIC THERAPY
     Dosage: 37.5/25MG ONCE A DAY
     Route: 048
  7. PANTOPRAZOLE SODIUM [Concomitant]
     Indication: GASTROOESOPHAGEAL REFLUX DISEASE
     Route: 048
  8. NAPROXEN [Concomitant]
     Indication: INFLAMMATION
     Route: 048
  9. AMITRIPTLINE HCL [Concomitant]
     Indication: ANTIDEPRESSANT THERAPY
     Route: 048
  10. SERPRALINE [Concomitant]
     Indication: ANXIETY
     Route: 048

REACTIONS (3)
  - BLOOD PRESSURE DECREASED [None]
  - DIZZINESS [None]
  - FATIGUE [None]
